FAERS Safety Report 4741465-5 (Version None)
Quarter: 2005Q3

REPORT INFORMATION
  Report Type: 
  Country: None (occurrence: None)
  Receive Date: 20050808
  Receipt Date: 20050721
  Transmission Date: 20060218
  Serious: Yes (Hospitalization)
  Sender: FDA-Public Use
  Company Number: 216059

PATIENT
  Age: 51 Year
  Sex: Female

DRUGS (7)
  1. HERCEPTIN [Suspect]
     Indication: BREAST CANCER METASTATIC
     Dosage: SEE IMAGE
     Route: 042
     Dates: start: 20050621, end: 20050621
  2. HERCEPTIN [Suspect]
     Indication: BREAST CANCER METASTATIC
     Dosage: SEE IMAGE
     Route: 042
     Dates: start: 20050628
  3. VINFLUNINE (VINFLUNINE) [Suspect]
     Indication: BREAST CANCER METASTATIC
     Dosage: SEE IMAGE
     Route: 042
     Dates: start: 20050621
  4. VINFLUNINE (VINFLUNINE) [Suspect]
     Indication: BREAST CANCER METASTATIC
     Dosage: SEE IMAGE
     Route: 042
     Dates: start: 20050712
  5. LISINOPRIL [Concomitant]
  6. LITICAN(ALIZAPRIDE HYDROCHLORIDE) [Concomitant]
  7. FORLAX (POLYETHYLENE GLYCOL, POTASSIUM NOS., SODIUM BICARBONATE, SODIU [Concomitant]

REACTIONS (2)
  - ABDOMINAL PAIN [None]
  - CONSTIPATION [None]
